FAERS Safety Report 19482975 (Version 2)
Quarter: 2022Q1

REPORT INFORMATION
  Report Type: Spontaneous
  Country: US (occurrence: US)
  Receive Date: 20210701
  Receipt Date: 20220307
  Transmission Date: 20220423
  Serious: No
  Sender: FDA-Public Use
  Company Number: US-PFIZER INC-2021641689

PATIENT
  Age: 69 Year
  Sex: Female
  Weight: 67.13 kg

DRUGS (6)
  1. PREMARIN [Suspect]
     Active Substance: ESTROGENS, CONJUGATED
     Indication: Vulvovaginal pain
     Dosage: HALF A GRAM TWICE A WEEK
  2. PREMARIN [Suspect]
     Active Substance: ESTROGENS, CONJUGATED
     Indication: Vulvovaginal dryness
     Dosage: 1 GRAM TWICE A WEEK
  3. PREMARIN [Suspect]
     Active Substance: ESTROGENS, CONJUGATED
     Dosage: 1 GRAM EVERY OTHER DAY
  4. ELIQUIS [Concomitant]
     Active Substance: APIXABAN
     Indication: Heart rate abnormal
     Dosage: 5 MG, 2X/DAY
     Route: 048
     Dates: start: 2016
  5. ELIQUIS [Concomitant]
     Active Substance: APIXABAN
     Indication: Cerebrovascular accident
  6. METOPROLOL SUCCINATE [Concomitant]
     Active Substance: METOPROLOL SUCCINATE
     Indication: Heart rate normal
     Dosage: 25 MG, 1X/DAY IN THE MORNING
     Route: 048

REACTIONS (5)
  - Drug ineffective [Unknown]
  - Weight decreased [Unknown]
  - Bone disorder [Unknown]
  - Anxiety [Unknown]
  - Off label use [Unknown]
